FAERS Safety Report 12972391 (Version 1)
Quarter: 2016Q4

REPORT INFORMATION
  Report Type: Report from Study
  Country: KR (occurrence: KR)
  Receive Date: 20161124
  Receipt Date: 20161124
  Transmission Date: 20170207
  Serious: No
  Sender: FDA-Public Use
  Company Number: KR-PROSTRAKAN-2016-KR-0160

PATIENT

DRUGS (12)
  1. WELLTAMIN [Concomitant]
     Indication: HEPATIC CIRRHOSIS
     Dosage: UNKNOWN
     Route: 065
     Dates: start: 20110517
  2. INTERMAX [Concomitant]
     Indication: PRODUCT USED FOR UNKNOWN INDICATION
     Dosage: UNKNOWN
     Route: 065
     Dates: start: 20110519, end: 20110519
  3. CISPLAN [Concomitant]
     Active Substance: CISPLATIN
     Indication: PRODUCT USED FOR UNKNOWN INDICATION
     Dosage: UNKNOWN
     Route: 065
     Dates: start: 20110518, end: 20110518
  4. CIPROBAY [Concomitant]
     Active Substance: CIPROFLOXACIN
     Indication: HEPATOCELLULAR CARCINOMA
     Dosage: UNKNOWN
     Route: 065
     Dates: start: 20110518, end: 20110521
  5. 5-FU [Concomitant]
     Active Substance: FLUOROURACIL
     Indication: PRODUCT USED FOR UNKNOWN INDICATION
     Dosage: UNKNOWN
     Route: 065
     Dates: start: 20110519, end: 20110519
  6. BONKY [Concomitant]
     Indication: HEPATIC CIRRHOSIS
     Dosage: UNKNOWN
     Route: 065
     Dates: start: 20110517
  7. URSA [Concomitant]
     Indication: HEPATIC CIRRHOSIS
     Dosage: UNKNOWN
     Route: 065
     Dates: start: 20110519
  8. GRANISETRON [Suspect]
     Active Substance: GRANISETRON
     Indication: PROPHYLAXIS OF NAUSEA AND VOMITING
     Dosage: UNKNOWN
     Route: 062
     Dates: start: 20110517, end: 20110521
  9. MACPERAN [Concomitant]
     Active Substance: METOCLOPRAMIDE HYDROCHLORIDE
     Indication: PRODUCT USED FOR UNKNOWN INDICATION
     Dosage: UNKNOWN
     Route: 065
     Dates: start: 20110518, end: 20110520
  10. BARACLUDE [Concomitant]
     Active Substance: ENTECAVIR
     Indication: CHRONIC HEPATITIS B
     Dosage: UNKNOWN
     Route: 065
     Dates: start: 20110517
  11. LEGALON [Concomitant]
     Active Substance: MILK THISTLE
     Indication: HEPATIC CIRRHOSIS
     Dosage: UNKNOWN
     Route: 065
     Dates: start: 20110517
  12. H-ZYME [Concomitant]
     Indication: HEPATIC CIRRHOSIS
     Dosage: UNKNOWN
     Route: 065
     Dates: start: 20110517

REACTIONS (4)
  - Aspartate aminotransferase increased [Recovering/Resolving]
  - Nausea [Recovering/Resolving]
  - Alanine aminotransferase increased [Recovering/Resolving]
  - Vomiting [Recovering/Resolving]

NARRATIVE: CASE EVENT DATE: 20110518
